FAERS Safety Report 6244607-8 (Version None)
Quarter: 2009Q2

REPORT INFORMATION
  Report Type: 
  Country: None (occurrence: None)
  Receive Date: 20090623
  Receipt Date: 20090623
  Transmission Date: 20091009
  Serious: Yes (Hospitalization)
  Sender: FDA-Public Use
  Company Number: None

PATIENT
  Age: 77 Year
  Sex: Male
  Weight: 76.8 kg

DRUGS (8)
  1. PLAVIX [Suspect]
     Indication: CORONARY ARTERY DISEASE
     Dosage: 75 MG DAILY PO (CHRONIC)
     Route: 048
  2. ASPIRIN [Suspect]
     Indication: CORONARY ARTERY DISEASE
     Dosage: 81MG DAILY PO (CHRONIC)
     Route: 048
  3. LOVASTATIN [Concomitant]
  4. TOPROL-XL [Concomitant]
  5. ZETIA [Concomitant]
  6. MAVIK [Concomitant]
  7. LEVOXYL [Concomitant]
  8. NUMEROUS VITAMINS [Concomitant]

REACTIONS (3)
  - ATRIAL FIBRILLATION [None]
  - MALLORY-WEISS SYNDROME [None]
  - PALPITATIONS [None]
